FAERS Safety Report 7987392 (Version 3)
Quarter: 2013Q2

REPORT INFORMATION
  Report Type: Spontaneous
  Country: US (occurrence: US)
  Receive Date: 20110613
  Receipt Date: 20130501
  Transmission Date: 20140414
  Serious: Yes (Hospitalization, Other)
  Sender: FDA-Public Use
  Company Number: US-ASTRAZENECA-2011SE34464

PATIENT
  Age: 67 Year
  Sex: Female

DRUGS (1)
  1. SYMBICORT PMDI [Suspect]
     Route: 055

REACTIONS (6)
  - Lung disorder [Unknown]
  - Cardiac disorder [Unknown]
  - Malaise [Unknown]
  - Spinal fracture [Unknown]
  - Fall [Unknown]
  - Malaise [Unknown]
